FAERS Safety Report 16411353 (Version 1)
Quarter: 2019Q2

REPORT INFORMATION
  Report Type: Spontaneous
  Country: CN (occurrence: CN)
  Receive Date: 20190610
  Receipt Date: 20190610
  Transmission Date: 20190711
  Serious: Yes (Death, Other)
  Sender: FDA-Public Use
  Company Number: CN-ASTRAZENECA-2019SE83371

PATIENT
  Age: 43 Year
  Sex: Male

DRUGS (8)
  1. GEFITINIB. [Suspect]
     Active Substance: GEFITINIB
     Indication: LUNG ADENOCARCINOMA STAGE III
     Dosage: COMBINED WITH CRIZOTINIB
     Route: 048
  2. GEFITINIB. [Suspect]
     Active Substance: GEFITINIB
     Indication: LUNG ADENOCARCINOMA STAGE III
     Route: 048
  3. BRIGATINIB [Suspect]
     Active Substance: BRIGATINIB
     Indication: LUNG ADENOCARCINOMA STAGE III
     Dosage: COMBINED WITH OSIMERTINIB
     Route: 048
  4. TAGRISSO [Suspect]
     Active Substance: OSIMERTINIB
     Indication: LUNG ADENOCARCINOMA STAGE III
     Dosage: COMBINED WITH BRIGATINIB
     Route: 048
  5. TAGRISSO [Suspect]
     Active Substance: OSIMERTINIB
     Indication: LUNG ADENOCARCINOMA STAGE III
     Dosage: COMBINED WITH CRIZOTINIB
     Route: 048
  6. CRIZOTINIB [Suspect]
     Active Substance: CRIZOTINIB
     Indication: LUNG ADENOCARCINOMA STAGE III
     Dosage: COMBINED WITH OSIMERTINIB
     Route: 048
  7. GEFITINIB. [Suspect]
     Active Substance: GEFITINIB
     Indication: LUNG ADENOCARCINOMA STAGE III
     Dosage: COMBINED WITH WHOLE BRAIN RADIOTHERAPY
     Route: 048
  8. CRIZOTINIB [Suspect]
     Active Substance: CRIZOTINIB
     Indication: LUNG ADENOCARCINOMA STAGE III
     Dosage: COMBINED WITH GEFITINIB
     Route: 048

REACTIONS (8)
  - Anaplastic lymphoma kinase gene mutation [Fatal]
  - Acquired gene mutation [Fatal]
  - Drug resistance [Fatal]
  - Rash [Unknown]
  - Metastases to liver [Unknown]
  - Metastases to adrenals [Unknown]
  - Malignant neoplasm progression [Fatal]
  - Diarrhoea [Unknown]
